FAERS Safety Report 18269598 (Version 1)
Quarter: 2020Q3

REPORT INFORMATION
  Report Type: Spontaneous
  Country: CH (occurrence: CH)
  Receive Date: 20200915
  Receipt Date: 20200915
  Transmission Date: 20201103
  Serious: Yes (Hospitalization, Other)
  Sender: FDA-Public Use
  Company Number: CH-PFIZER INC-2020348855

PATIENT
  Age: 67 Year
  Sex: Male

DRUGS (11)
  1. METFIN [Concomitant]
     Active Substance: METFORMIN HYDROCHLORIDE
     Indication: TYPE 2 DIABETES MELLITUS
     Dosage: 2000 MG, 1X/DAY (1000MG 2X1)
     Route: 048
     Dates: end: 20200804
  2. SOMNIUM [DIPHENHYDRAMINE HYDROCHLORIDE;LORAZEPAM] [Concomitant]
     Indication: BIPOLAR DISORDER
     Dosage: 1 DF, 1X/DAY (1 / 25MG 1X1)
     Route: 048
  3. TORASEMID SANDOZ ECO [Concomitant]
     Active Substance: TORSEMIDE
     Indication: CHRONIC KIDNEY DISEASE
     Dosage: 2.5 MG, DAILY (5MG, 0.5X1)
     Route: 048
     Dates: end: 20200805
  4. TAMSULOSIN MEPHA [Concomitant]
     Indication: BENIGN PROSTATIC HYPERPLASIA
     Dosage: 0.4 MG, 1X/DAY (0.4MG 1X1)
     Route: 048
  5. SEQUASE [Concomitant]
     Active Substance: QUETIAPINE FUMARATE
     Dosage: 25 MG, 4X/DAY (25MG 1X4 )
     Route: 048
     Dates: start: 20200801, end: 20200804
  6. SEQUASE [Concomitant]
     Active Substance: QUETIAPINE FUMARATE
     Indication: BIPOLAR DISORDER
     Dosage: 25 MG, 4X/DAY (25MG 1X4)
     Route: 048
     Dates: end: 20200727
  7. VENLAFAXINE [Suspect]
     Active Substance: VENLAFAXINE HYDROCHLORIDE
     Indication: MAJOR DEPRESSION
     Dosage: 150 MG, 1X/DAY (150MG 1X1)
     Route: 048
     Dates: start: 20200801, end: 20200805
  8. PRIADEL [LITHIUM CARBONATE] [Suspect]
     Active Substance: LITHIUM CARBONATE
     Dosage: 400 MG, 1X/DAY (400MG 1X1)
     Route: 048
     Dates: start: 20200801, end: 20200802
  9. ATORVASTATIN PFIZER [Concomitant]
     Active Substance: ATORVASTATIN
     Dosage: 20 MG, 1X/DAY (20MG 1X1)
     Route: 048
     Dates: end: 20200803
  10. VENLAFAXINE [Suspect]
     Active Substance: VENLAFAXINE HYDROCHLORIDE
     Indication: BIPOLAR DISORDER
     Dosage: 150 MG, 1X/DAY (150MG 1X1)
     Route: 048
     Dates: end: 20200727
  11. PRIADEL [LITHIUM CARBONATE] [Suspect]
     Active Substance: LITHIUM CARBONATE
     Indication: BIPOLAR DISORDER
     Dosage: 400 MG, 1X/DAY (400MG 1X1)
     Route: 048
     Dates: end: 20200727

REACTIONS (6)
  - Intentional dose omission [Unknown]
  - Nephrogenic diabetes insipidus [Recovered/Resolved]
  - Acute kidney injury [Recovering/Resolving]
  - Metabolic encephalopathy [Unknown]
  - Serotonin syndrome [Recovered/Resolved]
  - Intentional product misuse [Unknown]

NARRATIVE: CASE EVENT DATE: 202006
